FAERS Safety Report 9171476 (Version 1)
Quarter: 2013Q1

REPORT INFORMATION
  Report Type: Spontaneous
  Country: MX (occurrence: MX)
  Receive Date: 20130319
  Receipt Date: 20130319
  Transmission Date: 20140127
  Serious: Yes (Hospitalization, Other)
  Sender: FDA-Public Use
  Company Number: PHHY2013MX025963

PATIENT
  Age: 75 Year
  Sex: Male

DRUGS (1)
  1. ACLASTA [Suspect]
     Indication: OSTEOPOROSIS
     Dosage: 5 MG/100ML ANNUALLY
     Route: 042
     Dates: start: 201202

REACTIONS (2)
  - Road traffic accident [Recovering/Resolving]
  - Injury [Recovering/Resolving]
